FAERS Safety Report 5907814-7 (Version None)
Quarter: 2008Q4

REPORT INFORMATION
  Report Type: 
  Country: None (occurrence: None)
  Receive Date: 20081003
  Receipt Date: 20080930
  Transmission Date: 20090506
  Serious: Yes (Death)
  Sender: FDA-Public Use
  Company Number: JP-SANOFI-SYNTHELABO-F01200801513

PATIENT
  Sex: Female
  Weight: 40 kg

DRUGS (32)
  1. CIPROFLOXACIN [Concomitant]
     Indication: MEDICAL DEVICE COMPLICATION
     Dosage: UNK
     Route: 042
     Dates: start: 20080416, end: 20080426
  2. ROCEPHIN [Concomitant]
     Indication: MEDICAL DEVICE COMPLICATION
     Dosage: UNK
     Route: 042
     Dates: start: 20080408, end: 20080415
  3. LASIX [Concomitant]
     Indication: ACUTE MYOCARDIAL INFARCTION
     Dosage: UNK
     Route: 042
     Dates: start: 20080410, end: 20080426
  4. DIPRIVAN [Concomitant]
     Indication: ACUTE MYOCARDIAL INFARCTION
     Dosage: UNK
     Route: 042
     Dates: start: 20080408, end: 20080422
  5. DOBUTAMINE HYDROCHLORIDE [Concomitant]
     Indication: ACUTE MYOCARDIAL INFARCTION
     Dosage: UNK
     Route: 042
     Dates: start: 20080408, end: 20080415
  6. DOPAMINE HYDROCHLORIDE [Concomitant]
     Indication: ACUTE MYOCARDIAL INFARCTION
     Dosage: UNK
     Route: 042
     Dates: start: 20080408, end: 20080424
  7. NITROGLYCERIN [Concomitant]
     Dosage: UNK
     Route: 042
     Dates: start: 20080408, end: 20080424
  8. LANDIOLOL HYDROCHLORIDE [Concomitant]
     Indication: ACUTE MYOCARDIAL INFARCTION
     Dosage: UNK
     Route: 042
     Dates: start: 20080408, end: 20080910
  9. CALBOCK [Concomitant]
     Indication: ACUTE MYOCARDIAL INFARCTION
     Dosage: 16 MG
     Route: 048
     Dates: start: 20080424, end: 20080506
  10. LOSARTAN POTASSIUM [Concomitant]
     Indication: ACUTE MYOCARDIAL INFARCTION
     Dosage: 25 MG
     Route: 048
     Dates: start: 20080417, end: 20080424
  11. LANSOPRAZOLE [Concomitant]
     Dosage: 15 MG
     Route: 048
     Dates: start: 20080424, end: 20080430
  12. CEFDINIR [Concomitant]
     Route: 048
  13. ARTIST [Concomitant]
     Indication: ACUTE MYOCARDIAL INFARCTION
     Dosage: 1.25 TO 10 MG
     Route: 048
     Dates: start: 20080425
  14. ALDACTONE [Concomitant]
     Indication: ACUTE MYOCARDIAL INFARCTION
     Dosage: 25 MG
     Route: 048
     Dates: start: 20080501
  15. LIPITOR [Concomitant]
     Indication: ACUTE MYOCARDIAL INFARCTION
     Dosage: 20 MG
     Route: 048
     Dates: start: 20080425
  16. PERDIPINE [Concomitant]
     Indication: ACUTE MYOCARDIAL INFARCTION
     Dosage: UNK
     Route: 065
     Dates: start: 20080413, end: 20080414
  17. HANP [Concomitant]
     Indication: ACUTE MYOCARDIAL INFARCTION
     Dosage: UNK
     Route: 065
     Dates: start: 20080408, end: 20080423
  18. POTASSIUM CHLORIDE [Concomitant]
     Indication: ACUTE MYOCARDIAL INFARCTION
     Dosage: UNK
     Route: 042
     Dates: start: 20080410, end: 20080418
  19. HUMALIN [Concomitant]
     Indication: ACUTE MYOCARDIAL INFARCTION
     Dosage: UNK
     Route: 042
     Dates: start: 20080410, end: 20080422
  20. KIDMIN [Concomitant]
     Indication: ACUTE MYOCARDIAL INFARCTION
     Dosage: UNK
     Route: 042
     Dates: start: 20080410, end: 20080419
  21. VANCOMYCIN HYDROCHLORIDE [Concomitant]
     Indication: MEDICAL DEVICE COMPLICATION
     Dosage: UNK
     Route: 042
     Dates: start: 20080421, end: 20080430
  22. DIART [Concomitant]
     Indication: ACUTE MYOCARDIAL INFARCTION
     Dosage: 60 MG
     Route: 048
     Dates: start: 20080416
  23. MICARDIS [Concomitant]
     Indication: ACUTE MYOCARDIAL INFARCTION
     Dosage: 40 MG
     Route: 048
     Dates: start: 20080425
  24. HEPARIN [Concomitant]
     Indication: ACUTE MYOCARDIAL INFARCTION
     Dosage: 5000 UNIT
     Route: 042
     Dates: start: 20080408, end: 20080408
  25. HEPARIN [Concomitant]
     Dosage: UNK
     Route: 065
     Dates: start: 20080408, end: 20080419
  26. ASPIRIN [Concomitant]
     Indication: ACUTE MYOCARDIAL INFARCTION
     Dosage: 300 MG
     Route: 048
     Dates: start: 20080408, end: 20080408
  27. ASPIRIN [Concomitant]
     Dosage: 100 MG
     Route: 048
     Dates: start: 20080416
  28. CLOPIDOGREL [Suspect]
     Indication: ACUTE CORONARY SYNDROME
     Dosage: STARTING DOSE 300 MG
     Route: 048
     Dates: start: 20080408, end: 20080408
  29. CLOPIDOGREL [Suspect]
     Indication: ACUTE MYOCARDIAL INFARCTION
     Dosage: STARTING DOSE 300 MG
     Route: 048
     Dates: start: 20080408, end: 20080408
  30. CLOPIDOGREL [Suspect]
     Dosage: MAINTENANCE DOSE
     Route: 048
     Dates: start: 20080409
  31. CLOPIDOGREL [Suspect]
     Dosage: MAINTENANCE DOSE
     Route: 048
     Dates: start: 20080409
  32. NORADRENALINE [Concomitant]
     Indication: ACUTE MYOCARDIAL INFARCTION
     Dosage: UNK
     Route: 042
     Dates: start: 20080408, end: 20080409

REACTIONS (1)
  - THROMBOSIS IN DEVICE [None]
